FAERS Safety Report 9114661 (Version 2)
Quarter: 2013Q2

REPORT INFORMATION
  Report Type: Spontaneous
  Country: US (occurrence: US)
  Receive Date: 20130208
  Receipt Date: 20130412
  Transmission Date: 20140414
  Serious: Yes (Hospitalization)
  Sender: FDA-Public Use
  Company Number: US-TEVA-385273USA

PATIENT
  Age: 78 Year
  Sex: Male

DRUGS (11)
  1. TREANDA [Suspect]
     Indication: CHRONIC LYMPHOCYTIC LEUKAEMIA
     Dosage: 25 MGS/5ML
     Route: 042
  2. JALYN [Concomitant]
  3. FOLIC ACID [Concomitant]
  4. DITROPAN [Concomitant]
  5. AMBIEN [Concomitant]
  6. PREVACID [Concomitant]
  7. TYLENOL [Concomitant]
  8. BACTRIM [Concomitant]
  9. LOPRESSOR [Concomitant]
  10. LIPITOR [Concomitant]
  11. PROCRIT [Concomitant]

REACTIONS (2)
  - Febrile neutropenia [Recovered/Resolved]
  - Pancytopenia [Recovered/Resolved]
